FAERS Safety Report 16945981 (Version 1)
Quarter: 2019Q4

REPORT INFORMATION
  Report Type: Spontaneous
  Country: JP (occurrence: JP)
  Receive Date: 20191022
  Receipt Date: 20191022
  Transmission Date: 20200122
  Serious: Yes (Other)
  Sender: FDA-Public Use
  Company Number: JP-GALDERMA-JP19062078

PATIENT
  Age: 19 Year
  Sex: Female

DRUGS (3)
  1. DIFFERIN [Suspect]
     Active Substance: ADAPALENE
     Indication: ACNE
     Dosage: 0.1%
     Route: 061
  2. COIX [Concomitant]
     Indication: SKIN PAPILLOMA
     Route: 048
  3. DALACIN T [Concomitant]
     Active Substance: CLINDAMYCIN PHOSPHATE
     Indication: PRODUCT USED FOR UNKNOWN INDICATION
     Route: 061

REACTIONS (1)
  - Skin papilloma [Unknown]

NARRATIVE: CASE EVENT DATE: 20191008
